FAERS Safety Report 25600399 (Version 2)
Quarter: 2025Q3

REPORT INFORMATION
  Report Type: Spontaneous
  Country: US (occurrence: US)
  Receive Date: 20250724
  Receipt Date: 20250901
  Transmission Date: 20251020
  Serious: Yes (Death, Life-Threatening, Other)
  Sender: SUNOVION
  Company Number: US-SMPA-2025SPA009238

PATIENT
  Sex: Female

DRUGS (1)
  1. RETHYMIC [Suspect]
     Active Substance: ALLOGENIC THYMOCYTE-DEPLETED THYMUS TISSUE-AGDC
     Indication: DiGeorge^s syndrome

REACTIONS (5)
  - Mechanical ventilation complication [Fatal]
  - Nasal septum perforation [Unknown]
  - Pulmonary hypertension [Unknown]
  - Scleroderma [Unknown]
  - Ovarian failure [Unknown]

NARRATIVE: CASE EVENT DATE: 20250101
